FAERS Safety Report 10693713 (Version 1)
Quarter: 2015Q1

REPORT INFORMATION
  Report Type: Spontaneous
  Country: US (occurrence: US)
  Receive Date: 20150106
  Receipt Date: 20150106
  Transmission Date: 20150721
  Serious: Yes (Hospitalization)
  Sender: FDA-Public Use
  Company Number: US-ABBVIE-14P-163-1328086-00

PATIENT
  Age: 58 Year
  Sex: Male

DRUGS (1)
  1. ANDROGEL [Suspect]
     Active Substance: TESTOSTERONE
     Indication: BLOOD TESTOSTERONE DECREASED
     Route: 061
     Dates: start: 201102, end: 20110307

REACTIONS (5)
  - Emotional distress [Unknown]
  - Deep vein thrombosis [Unknown]
  - Injury [Unknown]
  - Physical disability [Unknown]
  - Anxiety [Unknown]
